FAERS Safety Report 19927762 (Version 1)
Quarter: 2021Q4

REPORT INFORMATION
  Report Type: Spontaneous
  Country: US (occurrence: US)
  Receive Date: 20211006
  Receipt Date: 20211006
  Transmission Date: 20220303
  Serious: Yes (Hospitalization)
  Sender: FDA-Public Use
  Company Number: None

PATIENT
  Age: 42 Year
  Sex: Female

DRUGS (1)
  1. REGEN-COV [Suspect]
     Active Substance: CASIRIVIMAB\IMDEVIMAB
     Indication: COVID-19
     Dosage: ?          OTHER FREQUENCY:ONE TIME;
     Route: 058
     Dates: start: 20210922, end: 20210922

REACTIONS (3)
  - Hypoaesthesia oral [None]
  - Paraesthesia oral [None]
  - Dyspnoea [None]

NARRATIVE: CASE EVENT DATE: 20210922
